FAERS Safety Report 9184413 (Version 3)
Quarter: 2013Q2

REPORT INFORMATION
  Report Type: Spontaneous
  Country: US (occurrence: US)
  Receive Date: 20130322
  Receipt Date: 20130404
  Transmission Date: 20140414
  Serious: Yes (Other)
  Sender: FDA-Public Use
  Company Number: US-JNJFOC-20130311278

PATIENT
  Sex: 0

DRUGS (3)
  1. DOXORUBICIN HYDROCHLORIDE [Suspect]
     Indication: SARCOMA
     Dosage: 48 HR INFUSION ON DAY 1 OF A 21-DAY CYCLE
     Route: 042
  2. DOXORUBICIN [Suspect]
     Indication: SARCOMA
     Dosage: 48 HR INFUSION ON DAY 1 OF A 21-DAY CYCLE
     Route: 041
  3. CIXUTUMUMAB [Suspect]
     Indication: SARCOMA
     Dosage: ADMINISTERED OVER 60 MIN ON DAY 1, 8, 15 AT ONE OF THE THREE DOSE LEVELS
     Route: 042

REACTIONS (17)
  - Sarcoma [Unknown]
  - Ejection fraction decreased [Unknown]
  - Toxicity to various agents [Unknown]
  - Mucosal inflammation [Unknown]
  - Hyperglycaemia [Unknown]
  - Diarrhoea [Unknown]
  - Anaemia [Unknown]
  - Neutropenia [Unknown]
  - Thrombocytopenia [Unknown]
  - Lymphopenia [Unknown]
  - Off label use [Unknown]
  - Nausea [Unknown]
  - Fatigue [Unknown]
  - Pain [Unknown]
  - Constipation [Unknown]
  - Nail disorder [Unknown]
  - Weight decreased [Unknown]
